FAERS Safety Report 6638471-2 (Version None)
Quarter: 2010Q1

REPORT INFORMATION
  Report Type: 
  Country: None (occurrence: None)
  Receive Date: 20100301
  Receipt Date: 20090616
  Transmission Date: 20100710
  Serious: Yes (Hospitalization)
  Sender: FDA-Public Use
  Company Number: RB-16993-2009

PATIENT
  Age: 29 Year
  Sex: Male
  Weight: 104.3273 kg

DRUGS (7)
  1. SUBOXONE [Suspect]
     Indication: DRUG DEPENDENCE
     Dosage: 8 MG QID SUBLINGUAL, 8 MG QD SUBLINGUAL
     Route: 060
     Dates: start: 20080101, end: 20090613
  2. SUBOXONE [Suspect]
     Indication: DRUG DEPENDENCE
     Dosage: 8 MG QID SUBLINGUAL, 8 MG QD SUBLINGUAL
     Route: 060
     Dates: start: 20090614, end: 20090614
  3. KLONOPIN [Concomitant]
  4. LYRICA [Concomitant]
  5. NEURONTIN [Concomitant]
  6. SEROQUEL [Concomitant]
  7. RISPERDAL [Concomitant]

REACTIONS (9)
  - ANXIETY [None]
  - DECREASED APPETITE [None]
  - FEELING ABNORMAL [None]
  - INSOMNIA [None]
  - LIMB CRUSHING INJURY [None]
  - NAUSEA [None]
  - PAIN [None]
  - PHYSICAL ASSAULT [None]
  - RESTLESSNESS [None]
